FAERS Safety Report 6862457-6 (Version None)
Quarter: 2010Q3

REPORT INFORMATION
  Report Type: 
  Country: None (occurrence: None)
  Receive Date: 20100716
  Receipt Date: 20100630
  Transmission Date: 20110219
  Serious: Yes (Hospitalization)
  Sender: FDA-Public Use
  Company Number: CV20100310

PATIENT
  Age: 49 Year
  Sex: Female

DRUGS (16)
  1. PROPOFOL [Suspect]
     Indication: INDUCTION OF ANAESTHESIA
     Dosage: INTRAVENOUS (NOT OTHERWISE SPECIFIED)
     Route: 042
     Dates: start: 20100112, end: 20100112
  2. ATRACURIUM HOSPIRA (ATRACURIUM) [Concomitant]
  3. SUFENTA PRESERVATIVE FREE [Concomitant]
  4. NORMACOL (BACTRIM) [Concomitant]
  5. DEXAMETHASON MERCK (DEXAMETHASONE SODIUM PHOSPHATE) [Concomitant]
  6. ACUPAN [Concomitant]
  7. BETADINE [Concomitant]
  8. NAROPEINE (ROPIVACAINE HYDROCHLORIDE) [Concomitant]
  9. DROPERIDOL [Concomitant]
  10. LOVENOX [Concomitant]
  11. MIDAZOLAM HCL [Concomitant]
  12. AUGMENTIN '125' [Concomitant]
  13. SUPRANE [Concomitant]
  14. ATROPINE SULFATE RENAUDIN (ATROPINE) [Concomitant]
  15. BETADINE [Concomitant]
  16. MEPSTOG,OME [Concomitant]

REACTIONS (2)
  - HAEMATURIA [None]
  - RENAL FAILURE ACUTE [None]
